FAERS Safety Report 9301630 (Version 1)
Quarter: 2012Q4

REPORT INFORMATION
  Report Type: Spontaneous
  Country: DE (occurrence: None)
  Receive Date: 20121109
  Receipt Date: 20121109
  Transmission Date: 20130627
  Serious: Yes (Life-Threatening, Other)
  Sender: FDA-Public Use
  Company Number: 2011S1000693

PATIENT
  Sex: Male

DRUGS (11)
  1. CUBICIN (DAPTOMYCIN) [Suspect]
     Indication: ENDOCARDITIS STAPHYLOCOCCAL
     Route: 042
     Dates: start: 20111007, end: 20111010
  2. RIFAMPICIN [Concomitant]
  3. ANTIBIOTICS [Concomitant]
  4. ZYVOXID [Concomitant]
  5. THIAZIDES [Concomitant]
  6. FUROSEMIDE [Concomitant]
  7. NSAID^S [Concomitant]
  8. ACE INHIBITOR NOS [Concomitant]
  9. ANTIANDROGENS [Concomitant]
  10. TORASEMIDE [Concomitant]
  11. OLMESARTAN MEDOXOMIL [Concomitant]

REACTIONS (16)
  - Coagulopathy [None]
  - Jaundice [None]
  - Mental status changes [None]
  - Transaminases increased [None]
  - Pyrexia [None]
  - Blood bilirubin increased [None]
  - International normalised ratio increased [None]
  - Prothrombin time prolonged [None]
  - Haemorrhage [None]
  - Haematoma [None]
  - Flank pain [None]
  - Muscle haemorrhage [None]
  - Chromaturia [None]
  - Nausea [None]
  - Fatigue [None]
  - Sepsis [None]
